FAERS Safety Report 7117435-9 (Version None)
Quarter: 2010Q4

REPORT INFORMATION
  Report Type: 
  Country: None (occurrence: None)
  Receive Date: 20101122
  Receipt Date: 20101109
  Transmission Date: 20110411
  Serious: Yes (Other)
  Sender: FDA-Public Use
  Company Number: CA-MYLANLABS-2010S1020968

PATIENT
  Age: 8 Month
  Sex: Female

DRUGS (10)
  1. BCG VACCINE [Suspect]
     Route: 065
  2. ISONIAZID [Suspect]
     Indication: TUBERCULOSIS
     Route: 065
  3. RIFAMPICIN [Suspect]
     Indication: TUBERCULOSIS
     Route: 065
  4. PYRAZINAMIDE [Suspect]
     Indication: TUBERCULOSIS
     Route: 065
  5. ETHAMBUTOL HYDROCHLORIDE [Suspect]
     Indication: TUBERCULOSIS
     Route: 065
  6. ZIDOVUDINE [Suspect]
     Indication: ANTIRETROVIRAL THERAPY
     Route: 065
  7. LAMIVUDINE [Suspect]
     Indication: ANTIRETROVIRAL THERAPY
     Route: 065
  8. KALETRA                            /01506501/ [Suspect]
     Indication: ANTIRETROVIRAL THERAPY
     Route: 065
  9. RITONAVIR [Suspect]
     Indication: ANTIRETROVIRAL THERAPY
     Route: 065
  10. COTRIMOXAZOLE [Concomitant]
     Indication: PROPHYLAXIS
     Route: 065

REACTIONS (3)
  - ACUTE HEPATIC FAILURE [None]
  - BOVINE TUBERCULOSIS [None]
  - IMMUNE RECONSTITUTION SYNDROME [None]
